FAERS Safety Report 5876625-3 (Version None)
Quarter: 2008Q3

REPORT INFORMATION
  Report Type: 
  Country: None (occurrence: None)
  Receive Date: 20080908
  Receipt Date: 20080826
  Transmission Date: 20090109
  Serious: Yes (Hospitalization)
  Sender: FDA-Public Use
  Company Number: 237312J08USA

PATIENT
  Age: 59 Year
  Sex: Female
  Weight: 56.246 kg

DRUGS (5)
  1. REBIF [Suspect]
     Indication: MULTIPLE SCLEROSIS
     Dosage: 44 MCG, 3 IN 1 WEKS, SUBCUTANEOUS
     Route: 058
     Dates: start: 20060717
  2. ASPIRIN [Concomitant]
  3. METOPROLOL (METOPROLOL/00376901/) [Concomitant]
  4. ZANAFLEX [Concomitant]
  5. VESICARE [Concomitant]

REACTIONS (2)
  - FALL [None]
  - HYPOTHERMIA [None]
